FAERS Safety Report 23740981 (Version 1)
Quarter: 2024Q2

REPORT INFORMATION
  Report Type: Spontaneous
  Country: CA (occurrence: CA)
  Receive Date: 20240415
  Receipt Date: 20240415
  Transmission Date: 20240716
  Serious: Yes (Hospitalization)
  Sender: FDA-Public Use
  Company Number: CA-TEVA-VS-3181257

PATIENT
  Age: 57 Year
  Sex: Female

DRUGS (3)
  1. NITROFURANTOIN [Suspect]
     Active Substance: NITROFURANTOIN
     Indication: Product used for unknown indication
     Route: 065
  2. VAGIFEM [Concomitant]
     Active Substance: ESTRADIOL
     Indication: Product used for unknown indication
     Dosage: 10/ VAGINAL SUPPOSITORY
     Route: 065
  3. ESTRONE [Concomitant]
     Active Substance: ESTRONE
     Indication: Product used for unknown indication
     Route: 065

REACTIONS (4)
  - Hypoxia [Recovering/Resolving]
  - Decreased appetite [Recovering/Resolving]
  - Oxygen therapy [Recovering/Resolving]
  - Dyspnoea [Recovering/Resolving]
